FAERS Safety Report 4286143-4 (Version None)
Quarter: 2004Q1

REPORT INFORMATION
  Report Type: 
  Country: None (occurrence: None)
  Receive Date: 20040116
  Receipt Date: 20031216
  Transmission Date: 20041129
  Serious: Yes (Hospitalization)
  Sender: FDA-Public Use
  Company Number: 200314912US

PATIENT
  Age: 26 Year
  Sex: Male
  Weight: 63.6 kg

DRUGS (10)
  1. BENZACLIN [Suspect]
     Indication: ACNE
     Dosage: QD TOP
     Dates: start: 20030501, end: 20030522
  2. BENZOYL PEROXIDE [Concomitant]
  3. ERYTHROMYCIN (BENZAYCIN) [Concomitant]
  4. CLINDAMYCIN PHOSPHATE [Concomitant]
  5. ADAPALENE (DIFFERIN) [Concomitant]
  6. CLARITHROMYCIN (BIAXIN) [Concomitant]
  7. CLINDAMYCIN PHOSPHATE (CLEOCIN T) [Concomitant]
  8. MINOCYCLINE HCL [Concomitant]
  9. SULFACETAMIDE SODIUM W/SULFUR [Concomitant]
  10. BENZOYL PEROXIDE(TRIAZ) [Concomitant]

REACTIONS (3)
  - ABDOMINAL PAIN [None]
  - COLITIS [None]
  - HAEMATOCHEZIA [None]
